FAERS Safety Report 5351015-0 (Version None)
Quarter: 2007Q2

REPORT INFORMATION
  Report Type: 
  Country: None (occurrence: None)
  Receive Date: 20070608
  Receipt Date: 20070601
  Transmission Date: 20071010
  Serious: Yes (Hospitalization)
  Sender: FDA-Public Use
  Company Number: DE-ELI_LILLY_AND_COMPANY-DE200706000369

PATIENT
  Sex: Female
  Weight: 52 kg

DRUGS (4)
  1. ZYPREXA [Suspect]
     Indication: PSYCHOTIC DISORDER
     Dosage: 7.5 MG, DAILY (1/D)
     Route: 048
     Dates: start: 20050501, end: 20060501
  2. ZYPREXA [Suspect]
     Dosage: 5 MG, DAILY (1/D)
     Route: 048
     Dates: start: 20061001
  3. ANAFRANIL [Concomitant]
     Dosage: 75 MG, DAILY (1/D)
     Dates: start: 20050501, end: 20060501
  4. ANAFRANIL [Concomitant]
     Dosage: 37.5 MG, DAILY (1/D)
     Dates: start: 20061001

REACTIONS (1)
  - NEURODERMATITIS [None]
